FAERS Safety Report 7394243-5 (Version None)
Quarter: 2011Q2

REPORT INFORMATION
  Report Type: 
  Country: None (occurrence: None)
  Receive Date: 20110405
  Receipt Date: 20110319
  Transmission Date: 20111010
  Serious: No
  Sender: FDA-Public Use
  Company Number: US-B.I. PHARMACEUTICALS,INC./RIDGEFIELD-2011-BP-08704BP

PATIENT
  Age: 91 Year
  Sex: Female

DRUGS (2)
  1. ZANTAC 150 [Suspect]
     Indication: DRUG THERAPY CHANGED
     Dosage: 150 MG
     Route: 048
     Dates: start: 20110319, end: 20110319
  2. CARAFATE [Concomitant]
     Dosage: 4 TBS DAILY

REACTIONS (2)
  - BURNING SENSATION [None]
  - CHEST PAIN [None]
